FAERS Safety Report 7206861-5 (Version None)
Quarter: 2011Q1

REPORT INFORMATION
  Report Type: 
  Country: None (occurrence: None)
  Receive Date: 20110103
  Receipt Date: 20101220
  Transmission Date: 20110831
  Serious: Yes (Hospitalization)
  Sender: FDA-Public Use
  Company Number: US-SANOFI-AVENTIS-2010SA076902

PATIENT
  Age: 62 Year
  Sex: Male
  Weight: 114.5 kg

DRUGS (22)
  1. FLUOROURACIL [Suspect]
     Route: 040
     Dates: start: 20070117, end: 20070117
  2. QUINAPRIL [Concomitant]
  3. NEURONTIN [Concomitant]
  4. CORTICOSTEROID NOS [Concomitant]
     Route: 061
  5. ASPIRIN [Concomitant]
  6. LEUCOVORIN CALCIUM [Suspect]
     Route: 041
     Dates: start: 20070117, end: 20070117
  7. FLUOROURACIL [Suspect]
     Dosage: DOSE:2.4 GRAM(S)/SQUARE METER
     Route: 041
     Dates: start: 20060802, end: 20060803
  8. MULTIPLE VITAMINS [Concomitant]
  9. OXALIPLATIN [Suspect]
     Route: 041
     Dates: start: 20060802, end: 20060802
  10. OXALIPLATIN [Suspect]
     Route: 041
     Dates: start: 20061206, end: 20061206
  11. LEUCOVORIN CALCIUM [Suspect]
     Route: 041
     Dates: start: 20060802, end: 20060802
  12. FLUOROURACIL [Suspect]
     Dosage: DOSE:2.4 GRAM(S)/SQUARE METER
     Route: 041
     Dates: start: 20070117, end: 20070119
  13. FINASTERIDE [Concomitant]
  14. MIRALAX [Concomitant]
  15. FLUOROURACIL [Suspect]
     Route: 040
     Dates: start: 20060802, end: 20060802
  16. NORCO [Concomitant]
  17. ASCORBIC ACID [Concomitant]
  18. CALCIUM/VITAMIN D [Concomitant]
  19. IBUPROFEN [Concomitant]
  20. AZITHROMYCIN [Concomitant]
  21. SIMVASTATIN [Concomitant]
  22. DILTIAZEM [Concomitant]

REACTIONS (1)
  - ACUTE MYELOID LEUKAEMIA [None]
